FAERS Safety Report 16821485 (Version 1)
Quarter: 2019Q3

REPORT INFORMATION
  Report Type: Spontaneous
  Country: CA (occurrence: CA)
  Receive Date: 20190918
  Receipt Date: 20190918
  Transmission Date: 20191005
  Serious: Yes (Other)
  Sender: FDA-Public Use
  Company Number: CA-PFIZER INC-2019218825

PATIENT
  Age: 34 Year
  Sex: Female

DRUGS (2)
  1. XELJANZ [Suspect]
     Active Substance: TOFACITINIB CITRATE
     Indication: PSORIATIC ARTHROPATHY
     Dosage: 5 MG, 2X/DAY (AT 7 AM AND 7 PM)
     Route: 048
     Dates: start: 20190518
  2. PREDNISONE. [Concomitant]
     Active Substance: PREDNISONE
     Dosage: 5 MG, UNK (IN THE MORNING, CURRENTLY WEANING)

REACTIONS (4)
  - Therapeutic response shortened [Unknown]
  - Pain [Unknown]
  - Headache [Unknown]
  - Coeliac disease [Unknown]

NARRATIVE: CASE EVENT DATE: 20190518
